FAERS Safety Report 9335971 (Version 4)
Quarter: 2013Q3

REPORT INFORMATION
  Report Type: Report from Study
  Country: JP (occurrence: JP)
  Receive Date: 20130606
  Receipt Date: 20130925
  Transmission Date: 20140515
  Serious: Yes (Hospitalization)
  Sender: FDA-Public Use
  Company Number: JP-JNJFOC-20130600054

PATIENT
  Age: 54 Year
  Sex: Male
  Weight: 108 kg

DRUGS (15)
  1. STELARA [Suspect]
     Indication: PSORIASIS
     Route: 058
     Dates: start: 20120808
  2. STELARA [Suspect]
     Indication: PSORIASIS
     Route: 058
     Dates: start: 20120516
  3. STELARA [Suspect]
     Indication: PSORIASIS
     Route: 058
     Dates: start: 20120418
  4. STELARA [Suspect]
     Indication: PSORIASIS
     Route: 058
     Dates: start: 20121024
  5. STELARA [Suspect]
     Indication: PSORIASIS
     Route: 058
     Dates: start: 20130130
  6. STELARA [Suspect]
     Indication: PSORIASIS
     Route: 058
     Dates: start: 20130501
  7. TELMISARTAN [Concomitant]
     Route: 048
  8. BETAMETHASONE [Concomitant]
     Indication: PSORIASIS
     Route: 061
  9. MAXACALCITOL [Concomitant]
     Indication: PSORIASIS
     Route: 061
  10. CICLOSPORIN [Concomitant]
     Indication: PSORIASIS
     Route: 048
     Dates: end: 20120516
  11. CICLOSPORIN [Concomitant]
     Indication: PSORIASIS
     Route: 048
     Dates: start: 20120517, end: 20120613
  12. ALLOPURINOL [Concomitant]
     Route: 048
     Dates: start: 20120612
  13. ALLOPURINOL [Concomitant]
     Route: 048
     Dates: start: 20120517, end: 20120611
  14. ALLOPURINOL [Concomitant]
     Route: 048
     Dates: end: 20120516
  15. HYDROCORTISONE [Concomitant]
     Indication: PSORIASIS
     Route: 061
     Dates: start: 20120808

REACTIONS (3)
  - Cellulitis [Recovered/Resolved]
  - Alanine aminotransferase increased [Not Recovered/Not Resolved]
  - Aspartate aminotransferase increased [Not Recovered/Not Resolved]
